FAERS Safety Report 21221467 (Version 1)
Quarter: 2022Q3

REPORT INFORMATION
  Report Type: Spontaneous
  Country: US (occurrence: None)
  Receive Date: 20220816
  Receipt Date: 20220816
  Transmission Date: 20221027
  Serious: Yes (Hospitalization)
  Sender: FDA-Public Use
  Company Number: None

PATIENT
  Age: 69 Year
  Sex: Female
  Weight: 94.2 kg

DRUGS (2)
  1. BOSUTINIB [Suspect]
     Active Substance: BOSUTINIB
     Dosage: FREQUENCY : AS DIRECTED;?
     Route: 048
     Dates: start: 20220310, end: 20220802
  2. IBRANCE [Suspect]
     Active Substance: PALBOCICLIB
     Dosage: FREQUENCY : DAILY;?
     Route: 048
     Dates: start: 20220310, end: 202207

REACTIONS (3)
  - Back pain [None]
  - Metastases to spine [None]
  - Metastases to liver [None]

NARRATIVE: CASE EVENT DATE: 20220811
